FAERS Safety Report 16385031 (Version 1)
Quarter: 2019Q2

REPORT INFORMATION
  Report Type: Spontaneous
  Country: GB (occurrence: GB)
  Receive Date: 20190603
  Receipt Date: 20190603
  Transmission Date: 20190711
  Serious: Yes (Hospitalization, Other)
  Sender: FDA-Public Use
  Company Number: GB-MYLANLABS-2019M1052382

PATIENT
  Sex: Male

DRUGS (3)
  1. CLOZARIL [Suspect]
     Active Substance: CLOZAPINE
     Dosage: 25 MILLIGRAM
     Dates: start: 201905
  2. CLOZARIL [Suspect]
     Active Substance: CLOZAPINE
     Dosage: 12.5 MILLIGRAM, BID
     Dates: start: 201905
  3. CLOZARIL [Suspect]
     Active Substance: CLOZAPINE
     Indication: SCHIZOPHRENIA
     Dosage: UNK
     Route: 048
     Dates: start: 20181210

REACTIONS (5)
  - Schizophrenia [Unknown]
  - White blood cell count increased [Recovering/Resolving]
  - Intentional product use issue [Unknown]
  - Sedation [Unknown]
  - Heart rate increased [Unknown]

NARRATIVE: CASE EVENT DATE: 201905
